FAERS Safety Report 6395774-7 (Version None)
Quarter: 2009Q4

REPORT INFORMATION
  Report Type: 
  Country: None (occurrence: None)
  Receive Date: 20091006
  Receipt Date: 20090916
  Transmission Date: 20100525
  Serious: Yes (Other)
  Sender: FDA-Public Use
  Company Number: JPI-P-008601

PATIENT
  Age: 55 Year
  Sex: Female
  Weight: 115.6672 kg

DRUGS (4)
  1. XYREM [Suspect]
     Indication: FIBROMYALGIA
     Dosage: 3 IN 1 D, ORAL, 13.5 GM (4.5 GM, 3 IN 1 D), ORAL
     Route: 048
     Dates: start: 20060101
  2. XYREM [Suspect]
     Indication: SLEEP DISORDER
     Dosage: 3 IN 1 D, ORAL, 13.5 GM (4.5 GM, 3 IN 1 D), ORAL
     Route: 048
     Dates: start: 20060101
  3. XYREM [Suspect]
     Indication: FIBROMYALGIA
     Dosage: 3 IN 1 D, ORAL, 13.5 GM (4.5 GM, 3 IN 1 D), ORAL
     Route: 048
     Dates: start: 20090914
  4. XYREM [Suspect]
     Indication: SLEEP DISORDER
     Dosage: 3 IN 1 D, ORAL, 13.5 GM (4.5 GM, 3 IN 1 D), ORAL
     Route: 048
     Dates: start: 20090914

REACTIONS (2)
  - CONDITION AGGRAVATED [None]
  - OSTEOARTHRITIS [None]
